FAERS Safety Report 21895503 (Version 1)
Quarter: 2023Q1

REPORT INFORMATION
  Report Type: Report from Study
  Country: DO (occurrence: DO)
  Receive Date: 20230123
  Receipt Date: 20230123
  Transmission Date: 20230418
  Serious: Yes (Other)
  Sender: FDA-Public Use
  Company Number: DO-JNJFOC-20230130514

PATIENT
  Age: 70 Year
  Sex: Female
  Weight: 55 kg

DRUGS (1)
  1. IMBRUVICA [Suspect]
     Active Substance: IBRUTINIB
     Indication: Chronic lymphocytic leukaemia
     Route: 048
     Dates: start: 20201201

REACTIONS (5)
  - Myocarditis [Unknown]
  - Discomfort [Unknown]
  - Neck pain [Unknown]
  - Cardiac discomfort [Unknown]
  - Tachycardia [Unknown]

NARRATIVE: CASE EVENT DATE: 20230101
